FAERS Safety Report 7772207-7 (Version None)
Quarter: 2011Q3

REPORT INFORMATION
  Report Type: 
  Country: None (occurrence: None)
  Receive Date: 20110922
  Receipt Date: 20110613
  Transmission Date: 20111222
  Serious: No
  Sender: FDA-Public Use
  Company Number: US-ASTRAZENECA-2009UW17748

PATIENT
  Age: 31 Year
  Sex: Male
  Weight: 113.4 kg

DRUGS (3)
  1. ZYPREXA [Concomitant]
  2. SEROQUEL [Suspect]
     Route: 048
     Dates: start: 20100227
  3. SEROQUEL [Suspect]
     Indication: SCHIZOPHRENIA
     Route: 048
     Dates: start: 20040101

REACTIONS (6)
  - OBESITY [None]
  - TYPE 2 DIABETES MELLITUS [None]
  - TYPE 1 DIABETES MELLITUS [None]
  - BLOOD CHOLESTEROL INCREASED [None]
  - HYPERLIPIDAEMIA [None]
  - WEIGHT INCREASED [None]
